FAERS Safety Report 21007009 (Version 2)
Quarter: 2023Q1

REPORT INFORMATION
  Report Type: Spontaneous
  Country: US (occurrence: US)
  Receive Date: 20220625
  Receipt Date: 20230217
  Transmission Date: 20230418
  Serious: Yes (Hospitalization, Other)
  Sender: FDA-Public Use
  Company Number: US-MLMSERVICE-20220614-3612665-1

PATIENT
  Age: 11 Year
  Sex: Female

DRUGS (4)
  1. ETOPOSIDE [Suspect]
     Active Substance: ETOPOSIDE
     Indication: Ewing^s sarcoma
     Dosage: 50% DOSE REDUCTION,??CUMULATIVE DOSE: 1.75 G/M2 ETOPOSIDE
  2. TOPOTECAN [Suspect]
     Active Substance: TOPOTECAN HYDROCHLORIDE
     Indication: Ewing^s sarcoma
     Dosage: CUMULATIVE DOSE: 18.75 MG/M2
  3. CYCLOPHOSPHAMIDE [Suspect]
     Active Substance: CYCLOPHOSPHAMIDE
     Indication: Ewing^s sarcoma
     Dosage: CUMULATIVE DOSE: 12.25 G/M2
  4. IFOSFAMIDE [Suspect]
     Active Substance: IFOSFAMIDE
     Indication: Ewing^s sarcoma
     Dosage: CUMULATIVE DOSE: 63 G/M2

REACTIONS (8)
  - Meningitis cryptococcal [Unknown]
  - Meningitis bacterial [Unknown]
  - Toxicity to various agents [Unknown]
  - Off label use [Unknown]
  - Sepsis [Unknown]
  - Myelosuppression [Unknown]
  - Lymphopenia [Unknown]
  - Pneumonia bacterial [Unknown]
